FAERS Safety Report 7926882-4 (Version None)
Quarter: 2011Q4

REPORT INFORMATION
  Report Type: 
  Country: None (occurrence: None)
  Receive Date: 20111118
  Receipt Date: 20111116
  Transmission Date: 20120403
  Serious: Yes (Other)
  Sender: FDA-Public Use
  Company Number: JP-PFIZER INC-2011266264

PATIENT
  Age: 61 Year
  Sex: Female

DRUGS (4)
  1. VARENICLINE TARTRATE [Suspect]
     Indication: SMOKING CESSATION THERAPY
     Dosage: 0.5 MG, 1X/DAY
     Route: 048
     Dates: start: 20110607, end: 20110609
  2. VARENICLINE TARTRATE [Suspect]
     Dosage: ONCE (MORNING)/ DAY
     Dates: start: 20110101, end: 20110830
  3. VARENICLINE TARTRATE [Suspect]
     Dosage: 0.5 MG, 2X/DAY
     Route: 048
     Dates: start: 20110610, end: 20110613
  4. VARENICLINE TARTRATE [Suspect]
     Dosage: 1 MG, 2X/DAY
     Route: 048
     Dates: start: 20110614, end: 20110101

REACTIONS (4)
  - SLEEP DISORDER [None]
  - DISTURBANCE IN ATTENTION [None]
  - ABNORMAL DREAMS [None]
  - THERMAL BURN [None]
